FAERS Safety Report 6445661-0 (Version None)
Quarter: 2009Q4

REPORT INFORMATION
  Report Type: 
  Country: None (occurrence: None)
  Receive Date: 20091118
  Receipt Date: 20091109
  Transmission Date: 20100525
  Serious: Yes (Other)
  Sender: FDA-Public Use
  Company Number: ZA-GILEAD-2009-0025356

PATIENT
  Sex: Female

DRUGS (23)
  1. EMTRIVA [Suspect]
     Indication: HIV INFECTION
     Route: 048
     Dates: start: 20060908, end: 20070317
  2. EMTRIVA [Suspect]
     Route: 048
     Dates: start: 20070322, end: 20071017
  3. TRUVADA [Suspect]
     Indication: HIV INFECTION
     Route: 048
     Dates: start: 20071018, end: 20080504
  4. ATAZANAVIR [Suspect]
     Indication: HIV INFECTION
     Route: 048
     Dates: start: 20060908, end: 20070317
  5. ATAZANAVIR [Suspect]
     Route: 048
     Dates: start: 20070322, end: 20071017
  6. DIDANOSINE [Suspect]
     Indication: HIV INFECTION
     Route: 048
     Dates: start: 20060908, end: 20070317
  7. DIDANOSINE [Suspect]
     Route: 048
     Dates: start: 20070322, end: 20071017
  8. AMOXICILLIN [Concomitant]
     Dates: start: 20070810, end: 20070816
  9. FANSIDAR [Concomitant]
     Dates: start: 20070731, end: 20070731
  10. FANSIDAR [Concomitant]
     Dates: start: 20070904, end: 20070904
  11. FERROUS SULFATE TAB [Concomitant]
     Dates: start: 20070731
  12. FERROUS SULFATE TAB [Concomitant]
     Dates: start: 20061004, end: 20070219
  13. CIPROFLOXACIN [Concomitant]
     Dates: start: 20070221, end: 20070322
  14. PARACETAMOL [Concomitant]
     Dates: start: 20070124, end: 20070129
  15. PARACETAMOL [Concomitant]
     Dates: end: 20070425
  16. PARACETAMOL [Concomitant]
     Dates: start: 20070810, end: 20070814
  17. QUININE [Concomitant]
     Dates: start: 20070420, end: 20070426
  18. QUININE [Concomitant]
     Dates: start: 20071201, end: 20071201
  19. ALBENDAZOLE [Concomitant]
     Dates: start: 20070420, end: 20070420
  20. ALBENDAZOLE [Concomitant]
     Dates: start: 20070731, end: 20070731
  21. ZIDOVUDINE [Concomitant]
     Indication: HIV INFECTION
     Dates: start: 20071018, end: 20080504
  22. NEVIRAPINE [Concomitant]
     Indication: HIV INFECTION
     Dates: start: 20071018, end: 20080504
  23. COTRIMOXAZOLE [Concomitant]
     Dates: start: 20070124, end: 20070202

REACTIONS (1)
  - STILLBIRTH [None]
